FAERS Safety Report 4405202-6 (Version None)
Quarter: 2004Q3

REPORT INFORMATION
  Report Type: 
  Country: None (occurrence: None)
  Receive Date: 20040722
  Receipt Date: 20040722
  Transmission Date: 20050211
  Serious: Yes (Other)
  Sender: FDA-Public Use
  Company Number: None

PATIENT
  Age: 26 Year
  Sex: Male
  Weight: 77.5651 kg

DRUGS (3)
  1. ATIVAN [Suspect]
     Indication: ANXIETY DISORDER
     Dosage: 1/2 TID PO PRN
     Route: 048
     Dates: start: 20040601, end: 20040701
  2. LORAZEPAM [Concomitant]
  3. ALPRAZOLAM [Concomitant]

REACTIONS (4)
  - DRUG INTOLERANCE [None]
  - FEELING ABNORMAL [None]
  - PHARMACEUTICAL PRODUCT COMPLAINT [None]
  - SOMNOLENCE [None]
